FAERS Safety Report 12360792 (Version 4)
Quarter: 2016Q2

REPORT INFORMATION
  Report Type: Report from Study
  Country: DE (occurrence: DE)
  Receive Date: 20160512
  Receipt Date: 20160609
  Transmission Date: 20160815
  Serious: Yes (Hospitalization)
  Sender: FDA-Public Use
  Company Number: DE-SA-2016SA070832

PATIENT
  Age: 40 Year
  Sex: Female
  Weight: 73 kg

DRUGS (17)
  1. TAVOR (LORAZEPAM) [Concomitant]
     Active Substance: LORAZEPAM
     Indication: SLEEP DISORDER
     Route: 048
     Dates: start: 20150818, end: 20150826
  2. PARACETAMOL [Concomitant]
     Active Substance: ACETAMINOPHEN
     Route: 048
     Dates: start: 20150824, end: 20150831
  3. LEMTRADA [Suspect]
     Active Substance: ALEMTUZUMAB
     Indication: MULTIPLE SCLEROSIS
     Route: 041
     Dates: start: 20150824, end: 20150828
  4. LYRICA [Concomitant]
     Active Substance: PREGABALIN
     Indication: DEPRESSED MOOD
     Route: 048
     Dates: start: 20150927
  5. ZOLPIDEM [Concomitant]
     Active Substance: ZOLPIDEM\ZOLPIDEM TARTRATE
     Indication: SLEEP DISORDER
     Route: 048
     Dates: start: 20140211
  6. CETIRIZINE [Concomitant]
     Active Substance: CETIRIZINE HYDROCHLORIDE
     Indication: INFECTION PROPHYLAXIS
     Route: 048
     Dates: start: 20150823, end: 20150829
  7. METHYLPREDNISOLONE. [Suspect]
     Active Substance: METHYLPREDNISOLONE
     Indication: BALANCE DISORDER
     Route: 065
  8. RANITIDINE. [Concomitant]
     Active Substance: RANITIDINE
     Indication: PROPHYLAXIS
     Route: 048
     Dates: start: 20150823, end: 20150829
  9. ACYCLOVIR. [Concomitant]
     Active Substance: ACYCLOVIR
     Indication: ANTIVIRAL PROPHYLAXIS
     Route: 048
     Dates: start: 20150823, end: 20150923
  10. METHYLPREDNISOLONE. [Concomitant]
     Active Substance: METHYLPREDNISOLONE
     Indication: PROPHYLAXIS
     Route: 048
     Dates: start: 20150823, end: 20150829
  11. PANTOZOL [Concomitant]
     Active Substance: PANTOPRAZOLE SODIUM
     Indication: PROPHYLAXIS
     Route: 048
     Dates: start: 20150914, end: 20151010
  12. AUGMENTAN [Concomitant]
     Active Substance: AMOXICILLIN\CLAVULANATE POTASSIUM
     Indication: INFECTION PROPHYLAXIS
     Route: 042
  13. LYRICA [Concomitant]
     Active Substance: PREGABALIN
     Indication: DEPRESSED MOOD
     Route: 048
     Dates: start: 20120516
  14. AERIUS [Concomitant]
     Active Substance: DESLORATADINE
     Indication: PROPHYLAXIS
     Route: 048
     Dates: start: 20150823, end: 20150829
  15. MONO-EMBOLEX [Concomitant]
     Active Substance: CERTOPARIN SODIUM
     Indication: PROPHYLAXIS
     Route: 042
     Dates: start: 20150824, end: 20150825
  16. ZOLPIDEM [Concomitant]
     Active Substance: ZOLPIDEM\ZOLPIDEM TARTRATE
     Indication: SLEEP DISORDER
     Route: 048
     Dates: start: 20140211
  17. IBUPROFEN. [Concomitant]
     Active Substance: IBUPROFEN
     Indication: HEADACHE
     Route: 048
     Dates: start: 20150914, end: 20151028

REACTIONS (20)
  - Gait disturbance [Unknown]
  - Alopecia [Unknown]
  - Viral infection [Unknown]
  - Pyrexia [Recovered/Resolved]
  - Uhthoff^s phenomenon [Unknown]
  - Cough [Recovering/Resolving]
  - Dyspnoea [Recovering/Resolving]
  - Dysphagia [Unknown]
  - Hypotension [Recovered/Resolved]
  - Headache [Recovered/Resolved]
  - Vomiting [Recovered/Resolved]
  - Nausea [Recovered/Resolved]
  - Ear discomfort [Unknown]
  - Oedema peripheral [Unknown]
  - Diarrhoea [Recovered/Resolved]
  - Bronchitis [Unknown]
  - Dysphonia [Unknown]
  - Balance disorder [Recovered/Resolved]
  - Heart rate increased [Recovered/Resolved]
  - Pneumonia [Recovering/Resolving]

NARRATIVE: CASE EVENT DATE: 2015
